FAERS Safety Report 16962349 (Version 1)
Quarter: 2019Q4

REPORT INFORMATION
  Report Type: Spontaneous
  Country: DK (occurrence: DK)
  Receive Date: 20191025
  Receipt Date: 20191025
  Transmission Date: 20200122
  Serious: Yes (Hospitalization)
  Sender: FDA-Public Use
  Company Number: DK-B.I. PHARMACEUTICALS,INC./RIDGEFIELD-2019-12-109289

PATIENT
  Age: 77 Year
  Sex: Male

DRUGS (5)
  1. PANTOPRAZOL ACTAVIS [Concomitant]
     Active Substance: PANTOPRAZOLE SODIUM
     Indication: GASTROOESOPHAGEAL REFLUX DISEASE
     Dosage: STYRKE: 40 MG
     Route: 048
     Dates: start: 20171212
  2. AMLODIPIN ACTAVIS [AMLODIPINE MESILATE] [Concomitant]
     Indication: HYPERTENSION
     Dosage: STYRKE: 5 MG
     Route: 048
     Dates: start: 20150917, end: 20191007
  3. PRADAXA [Suspect]
     Active Substance: DABIGATRAN ETEXILATE MESYLATE
     Indication: ATRIAL FLUTTER
     Dosage: STYRKE: 150 MG
     Route: 048
     Dates: start: 20190922, end: 20191003
  4. GABAMED [GABAPENTIN] [Concomitant]
     Indication: NEURALGIA
     Dosage: STYRKE: 300 MG
     Route: 048
     Dates: start: 20170103
  5. KININ [QUININE HYDROCHLORIDE] [Concomitant]
     Indication: MUSCLE SPASMS
     Dosage: STYRKE: 100 MG
     Route: 048
     Dates: start: 20171212

REACTIONS (5)
  - C-reactive protein increased [Recovering/Resolving]
  - Petechiae [Not Recovered/Not Resolved]
  - Musculoskeletal pain [Not Recovered/Not Resolved]
  - Rash macular [Not Recovered/Not Resolved]
  - Arthralgia [Not Recovered/Not Resolved]

NARRATIVE: CASE EVENT DATE: 20190928
